FAERS Safety Report 4327536-6 (Version None)
Quarter: 2004Q1

REPORT INFORMATION
  Report Type: 
  Country: None (occurrence: None)
  Receive Date: 20040330
  Receipt Date: 20040330
  Transmission Date: 20041129
  Serious: Yes (Death, Hospitalization)
  Sender: FDA-Public Use
  Company Number: None

PATIENT
  Age: 89 Year

DRUGS (2)
  1. VIOXX [Suspect]
     Dosage: 12.5 MG DAILY ORAL
     Route: 048
  2. ASPIRIN [Suspect]

REACTIONS (3)
  - CARDIAC ARREST [None]
  - CARDIO-RESPIRATORY ARREST [None]
  - GASTROINTESTINAL HAEMORRHAGE [None]
